FAERS Safety Report 15775407 (Version 1)
Quarter: 2018Q4

REPORT INFORMATION
  Report Type: Spontaneous
  Country: JP (occurrence: JP)
  Receive Date: 20181231
  Receipt Date: 20181231
  Transmission Date: 20190205
  Serious: Yes (Hospitalization, Congenital Anomaly)
  Sender: FDA-Public Use
  Company Number: JP-TEVA-2018-JP-993397

PATIENT
  Age: 68 Year
  Sex: Male

DRUGS (2)
  1. DICLOFENAC SODIUM. [Suspect]
     Active Substance: DICLOFENAC SODIUM
     Indication: PRODUCT USED FOR UNKNOWN INDICATION
     Route: 065
  2. NIVOLUMAB [Suspect]
     Active Substance: NIVOLUMAB
     Indication: LUNG SQUAMOUS CELL CARCINOMA METASTATIC
     Route: 065

REACTIONS (8)
  - Melaena [Unknown]
  - Gastric ulcer [Recovering/Resolving]
  - Gastric ulcer haemorrhage [Recovered/Resolved]
  - Acquired haemophilia [Unknown]
  - Shock haemorrhagic [Unknown]
  - Anaemia [Unknown]
  - Acute kidney injury [Unknown]
  - Factor VIII deficiency [Unknown]
